FAERS Safety Report 9470505 (Version 2)
Quarter: 2014Q1

REPORT INFORMATION
  Report Type: Report from Study
  Country: US (occurrence: US)
  Receive Date: 20130822
  Receipt Date: 20140110
  Transmission Date: 20141002
  Serious: Yes (Other)
  Sender: FDA-Public Use
  Company Number: US-SANOFI-AVENTIS-2013SA083694

PATIENT
  Age: 51 Year
  Sex: Female

DRUGS (21)
  1. OXALIPLATIN [Suspect]
     Indication: METASTASES TO LIVER
     Dosage: ON DAY 1; INFUSION
     Route: 013
  2. OXALIPLATIN [Suspect]
     Indication: METASTASES TO LIVER
     Dosage: ON DAY 1;INFUSION
     Route: 013
  3. OXALIPLATIN [Suspect]
     Indication: METASTASES TO LIVER
     Dosage: ON DAY 1;INFUSION
     Route: 013
  4. OXALIPLATIN [Suspect]
     Indication: METASTASES TO LIVER
     Dosage: ON DAY 1;INFUSION
     Route: 013
  5. OXALIPLATIN [Suspect]
     Indication: METASTASES TO LIVER
     Dosage: ON DAY 1;INFUSION
     Route: 013
  6. OXALIPLATIN [Suspect]
     Indication: METASTASES TO LIVER
     Dosage: ON DAY 1;INFUSION
     Route: 013
  7. OXALIPLATIN [Suspect]
     Indication: METASTASES TO LIVER
     Dosage: ON DAY 1;INFUSION
     Route: 013
  8. FLUOROURACIL [Concomitant]
     Indication: METASTASES TO LIVER
     Dosage: ON DAY 1
     Route: 042
  9. LEUCOVORIN [Concomitant]
     Indication: METASTASES TO LIVER
     Dosage: ON DAY 1
  10. BEVACIZUMAB [Concomitant]
     Indication: METASTASES TO LIVER
     Dosage: ON DAY 2
  11. CETUXIMAB [Concomitant]
     Indication: METASTASES TO LIVER
     Dosage: ON DAY 2
  12. ALPRAZOLAM [Concomitant]
  13. BUPROPION [Concomitant]
  14. DICYCLOMINE [Concomitant]
  15. ESOMEPRAZOLE [Concomitant]
  16. HYDROCHLOROTHIAZIDE/IRBESARTAN [Concomitant]
  17. LEVOTHYROXINE [Concomitant]
  18. NAPROXEN [Concomitant]
  19. PROCHLORPERAZINE [Concomitant]
  20. ROPINIROLE [Concomitant]
  21. TRAZODONE [Concomitant]

REACTIONS (4)
  - Hyperbilirubinaemia [Recovered/Resolved]
  - Aspartate aminotransferase increased [Recovered/Resolved]
  - Alanine aminotransferase increased [Recovered/Resolved]
  - Blood alkaline phosphatase increased [Unknown]
